FAERS Safety Report 7206283-7 (Version None)
Quarter: 2011Q1

REPORT INFORMATION
  Report Type: 
  Country: None (occurrence: None)
  Receive Date: 20110103
  Receipt Date: 20101222
  Transmission Date: 20110831
  Serious: Yes (Hospitalization)
  Sender: FDA-Public Use
  Company Number: PHHY2010IT87239

PATIENT
  Sex: Female

DRUGS (1)
  1. SANDIMMUNE [Suspect]
     Indication: APLASTIC ANAEMIA
     Dosage: 0.6 MG, UNK
     Route: 048
     Dates: end: 20101001

REACTIONS (1)
  - HYPERTENSIVE CRISIS [None]
